FAERS Safety Report 5825334-5 (Version None)
Quarter: 2008Q3

REPORT INFORMATION
  Report Type: 
  Country: None (occurrence: None)
  Receive Date: 20080729
  Receipt Date: 20080111
  Transmission Date: 20090109
  Serious: No
  Sender: FDA-Public Use
  Company Number: US-BAYER-200810215BCC

PATIENT
  Age: 68 Year
  Sex: Female
  Weight: 63 kg

DRUGS (8)
  1. ALEVE [Suspect]
     Indication: MUSCULOSKELETAL PAIN
     Dosage: TOTAL DAILY DOSE: 880 MG  UNIT DOSE: 220 MG
     Route: 048
     Dates: start: 20080109, end: 20080111
  2. VYTORIN [Concomitant]
  3. BENICAR [Concomitant]
  4. NITROGLYCERIN [Concomitant]
  5. ALLEGRA [Concomitant]
  6. PLAVIX [Concomitant]
  7. TRIAMTERENE AND HYDROCHLOROTHIAZIDE [Concomitant]
  8. ASPIRIN [Concomitant]

REACTIONS (1)
  - MUSCULOSKELETAL PAIN [None]
